FAERS Safety Report 12977589 (Version 1)
Quarter: 2016Q4

REPORT INFORMATION
  Report Type: Spontaneous
  Country: CA (occurrence: CA)
  Receive Date: 20161128
  Receipt Date: 20161128
  Transmission Date: 20170207
  Serious: Yes (Other)
  Sender: FDA-Public Use
  Company Number: CA-CONCORDIA PHARMACEUTICALS INC.-E2B_00007921

PATIENT
  Age: 52 Year
  Sex: Female

DRUGS (5)
  1. PLAQUENIL [Suspect]
     Active Substance: HYDROXYCHLOROQUINE SULFATE
     Indication: RHEUMATOID ARTHRITIS
     Route: 065
     Dates: start: 200701
  2. ENBREL [Suspect]
     Active Substance: ETANERCEPT
     Indication: RHEUMATOID ARTHRITIS
     Route: 065
     Dates: start: 2010
  3. METHOTREXATE. [Concomitant]
     Active Substance: METHOTREXATE
  4. XELJANZ [Suspect]
     Active Substance: TOFACITINIB CITRATE
     Indication: RHEUMATOID ARTHRITIS
     Route: 048
     Dates: start: 20160407
  5. ARAVA [Suspect]
     Active Substance: LEFLUNOMIDE
     Indication: RHEUMATOID ARTHRITIS
     Route: 065
     Dates: start: 201006, end: 201010

REACTIONS (13)
  - Pain [Unknown]
  - Drug ineffective [Unknown]
  - Feeling abnormal [Unknown]
  - Asthenia [Unknown]
  - Rash [Unknown]
  - Pneumonia [Unknown]
  - Fatigue [Unknown]
  - Somnolence [Unknown]
  - Activities of daily living impaired [Unknown]
  - Musculoskeletal stiffness [Unknown]
  - Sinusitis [Unknown]
  - Drug intolerance [Unknown]
  - Nausea [Unknown]

NARRATIVE: CASE EVENT DATE: 2010
